FAERS Safety Report 8575108 (Version 2)
Quarter: 2014Q1

REPORT INFORMATION
  Report Type: Spontaneous
  Country: US (occurrence: None)
  Receive Date: 20120323
  Receipt Date: 20130305
  Transmission Date: 20141002
  Serious: Yes (Hospitalization, Other)
  Sender: FDA-Public Use
  Company Number: 163-21880-11041231

PATIENT
  Age: 71 Year
  Sex: Female
  Weight: 115.6 kg

DRUGS (35)
  1. REVLIMID [Suspect]
     Indication: PLASMA CELL MYELOMA
     Dosage: 25 MG, DAILY X 21 DAYS THEN 7 DAYS OFF, PO
     Route: 048
     Dates: start: 20090731, end: 20100202
  2. DEXAMETHASONE (DEXAMETHASONE) [Concomitant]
  3. FUROSEMIDE (FUROSEMIDE) [Concomitant]
  4. CALCIUM CARBONATE [Concomitant]
  5. CLONIDINE TRANSDERMAL SYSTEM [Concomitant]
  6. COUMADIN [Concomitant]
  7. FERROUS SULFATE [Concomitant]
  8. GABAPENTIN (GABAPENTIN) [Concomitant]
  9. LOSARTAN POTASSIUM [Concomitant]
  10. OXYCONTIN [Concomitant]
  11. SERTRALINE HYDROCHLORIDE [Concomitant]
  12. SIMVASTATIN [Concomitant]
  13. VITAMIN D (ERGOCALCIFEROL) [Concomitant]
  14. OXYCODONE (OXYCODONE) [Concomitant]
  15. SPIRIVA [Concomitant]
  16. ASPIRIN (ACETYLSALICYLIC ACID) [Concomitant]
  17. LASIX (FUROSEMIDE) [Concomitant]
  18. OS-CAL (LEOKVIT CA) [Concomitant]
  19. NEURONTIN (GABAPENTIN) [Concomitant]
  20. INSULIN [Concomitant]
  21. PHOSLO (CALCIUM ACETATE) [Concomitant]
  22. LEVAQUIN (LEVOFLOXACIN) [Concomitant]
  23. PROTONIX [Concomitant]
  24. MIRALAX (MACROGOL) [Concomitant]
  25. ZOLOFT (SERTRALINE HYDROCHLORIDE) [Concomitant]
  26. VANCOMYCIN [Concomitant]
  27. TOBRAMYCIN [Concomitant]
  28. PROCRIT (ERYTHROPOIETIN) [Concomitant]
  29. SENNA [Concomitant]
  30. GLUCOTROL (GLIPEIZIDE) [Concomitant]
  31. AREDIA (PAMIDRONATE DISODIUM) [Concomitant]
  32. METFORMIN [Concomitant]
  33. OMEPRAZOLE [Concomitant]
  34. TIOTROPIUM BROMIDE MONOHYDRATE [Concomitant]
  35. BISACODYL [Concomitant]

REACTIONS (5)
  - Deep vein thrombosis [None]
  - Renal failure [None]
  - Pyrexia [None]
  - Asthenia [None]
  - Anaemia [None]
